FAERS Safety Report 18007648 (Version 1)
Quarter: 2020Q3

REPORT INFORMATION
  Report Type: Spontaneous
  Country: CN (occurrence: CN)
  Receive Date: 20200710
  Receipt Date: 20200710
  Transmission Date: 20201103
  Serious: Yes (Other)
  Sender: FDA-Public Use
  Company Number: CN-SA-2020SA174613

PATIENT

DRUGS (1)
  1. CEREZYME [Suspect]
     Active Substance: IMIGLUCERASE
     Indication: GAUCHER^S DISEASE
     Dosage: 400 UNIT
     Route: 041
     Dates: start: 20200603, end: 20200603

REACTIONS (1)
  - Apnoea [Recovering/Resolving]

NARRATIVE: CASE EVENT DATE: 20200604
